FAERS Safety Report 24624672 (Version 2)
Quarter: 2024Q4

REPORT INFORMATION
  Report Type: Spontaneous
  Country: GB (occurrence: GB)
  Receive Date: 20241115
  Receipt Date: 20241129
  Transmission Date: 20250114
  Serious: Yes (Other)
  Sender: TEVA
  Company Number: GB-MLMSERVICE-20241016-PI229911-00270-2

PATIENT
  Age: 52 Year
  Sex: Female

DRUGS (14)
  1. PREDNISOLONE [Suspect]
     Active Substance: PREDNISOLONE
     Indication: Sarcoidosis
     Dosage: HIGH STEROID DOSES
     Route: 065
     Dates: start: 2006
  2. PREDNISOLONE [Suspect]
     Active Substance: PREDNISOLONE
     Indication: Sarcoidosis
     Route: 065
  3. PREDNISOLONE [Suspect]
     Active Substance: PREDNISOLONE
     Indication: Sarcoidosis
     Route: 065
     Dates: start: 2006
  4. HYDROXYCHLOROQUINE [Concomitant]
     Active Substance: HYDROXYCHLOROQUINE
     Indication: Sarcoidosis
     Dates: start: 201402, end: 201404
  5. RITUXIMAB [Concomitant]
     Active Substance: RITUXIMAB
     Indication: Sarcoidosis
     Dosage: 2 DOSES
     Dates: start: 2016
  6. RITUXIMAB [Concomitant]
     Active Substance: RITUXIMAB
     Indication: Sarcoidosis
     Dosage: 2 DOSES
     Dates: start: 2021
  7. AZATHIOPRINE [Concomitant]
     Active Substance: AZATHIOPRINE
     Indication: Sarcoidosis
     Dates: start: 201308, end: 201404
  8. AZATHIOPRINE [Concomitant]
     Active Substance: AZATHIOPRINE
     Indication: Sarcoidosis
     Dates: start: 201610, end: 202301
  9. MYCOPHENOLATE MOFETIL [Concomitant]
     Active Substance: MYCOPHENOLATE MOFETIL
     Indication: Sarcoidosis
     Dates: start: 201406, end: 201408
  10. METHOTREXATE [Concomitant]
     Active Substance: METHOTREXATE
     Indication: Sarcoidosis
     Dates: start: 201302, end: 201305
  11. INFLIXIMAB [Concomitant]
     Active Substance: INFLIXIMAB
     Indication: Sarcoidosis
     Dosage: DURATION: 7 MONTHS
     Dates: start: 201409, end: 201504
  12. TOFACITINIB [Concomitant]
     Active Substance: TOFACITINIB
     Indication: Sarcoidosis
     Dates: start: 202207
  13. THALIDOMIDE [Concomitant]
     Active Substance: THALIDOMIDE
     Indication: Sarcoidosis
     Dates: start: 201602
  14. METHYLPREDNISOLONE [Suspect]
     Active Substance: METHYLPREDNISOLONE
     Indication: Sarcoidosis
     Dosage: HIGH STEROID DOSES
     Route: 065
     Dates: start: 2006

REACTIONS (4)
  - Psychotic disorder [Unknown]
  - Drug ineffective [Unknown]
  - Nightmare [Unknown]
  - Personality change [Unknown]
